FAERS Safety Report 14975130 (Version 1)
Quarter: 2018Q2

REPORT INFORMATION
  Report Type: Spontaneous
  Country: HU (occurrence: HU)
  Receive Date: 20180605
  Receipt Date: 20180605
  Transmission Date: 20180711
  Serious: Yes (Other)
  Sender: FDA-Public Use
  Company Number: HU-SA-2018SA145117

PATIENT
  Age: 51 Year
  Sex: Male

DRUGS (2)
  1. METHYLPREDNISOLONE. [Concomitant]
     Active Substance: METHYLPREDNISOLONE
     Indication: GRANULOMATOSIS WITH POLYANGIITIS
  2. CHLOROQUINE. [Suspect]
     Active Substance: CHLOROQUINE
     Indication: GRANULOMATOSIS WITH POLYANGIITIS

REACTIONS (3)
  - Aspergillus infection [Recovering/Resolving]
  - Herpes zoster [Recovering/Resolving]
  - Drug ineffective [Unknown]
